FAERS Safety Report 10143038 (Version 3)
Quarter: 2014Q2

REPORT INFORMATION
  Report Type: Spontaneous
  Country: US (occurrence: US)
  Receive Date: 20140430
  Receipt Date: 20140522
  Transmission Date: 20141212
  Serious: Yes (Disabling)
  Sender: FDA-Public Use
  Company Number: US-SA-2014SA052308

PATIENT
  Age: 46 Year
  Sex: Female

DRUGS (3)
  1. LANTUS SOLOSTAR [Suspect]
     Indication: TYPE 2 DIABETES MELLITUS
     Dosage: DOSE:50 UNIT(S)
     Route: 065
     Dates: start: 2007
  2. NOVOLOG [Suspect]
     Indication: TYPE 2 DIABETES MELLITUS
     Route: 065
  3. SOLOSTAR [Concomitant]
     Indication: DIABETES MELLITUS

REACTIONS (1)
  - Blindness [Unknown]
